FAERS Safety Report 6197258-8 (Version None)
Quarter: 2009Q2

REPORT INFORMATION
  Report Type: 
  Country: None (occurrence: None)
  Receive Date: 20090521
  Receipt Date: 20090427
  Transmission Date: 20091009
  Serious: Yes (Hospitalization)
  Sender: FDA-Public Use
  Company Number: DE-JNJFOC-20081005052

PATIENT
  Sex: Female
  Weight: 95 kg

DRUGS (26)
  1. GOLIMUMAB [Suspect]
     Route: 058
  2. GOLIMUMAB [Suspect]
     Route: 058
  3. GOLIMUMAB [Suspect]
     Route: 058
  4. GOLIMUMAB [Suspect]
     Route: 058
  5. GOLIMUMAB [Suspect]
     Route: 058
  6. GOLIMUMAB [Suspect]
     Route: 058
  7. GOLIMUMAB [Suspect]
     Route: 058
  8. GOLIMUMAB [Suspect]
     Route: 058
  9. GOLIMUMAB [Suspect]
     Route: 058
  10. GOLIMUMAB [Suspect]
     Route: 058
  11. GOLIMUMAB [Suspect]
     Route: 058
  12. GOLIMUMAB [Suspect]
     Route: 058
  13. GOLIMUMAB [Suspect]
     Route: 058
  14. GOLIMUMAB [Suspect]
     Route: 058
  15. GOLIMUMAB [Suspect]
     Indication: RHEUMATOID ARTHRITIS
     Route: 058
  16. CALCILAC [Concomitant]
     Route: 048
  17. URBASON [Concomitant]
     Route: 048
  18. IBUPROFEN [Concomitant]
     Indication: ARTHRALGIA
     Route: 048
  19. METHOTREXATE SODIUM [Concomitant]
     Route: 048
  20. FOLSAN [Concomitant]
     Route: 048
  21. CARMEN [Concomitant]
     Route: 048
  22. OMEPRAZOL [Concomitant]
     Route: 048
  23. METHYLPREDNISOLONE [Concomitant]
     Dosage: TAPERING FROM 20 MG TO 8 MG, REDUCTION BY 2 MG EVERY 5 DAYS.
     Route: 048
  24. RAMIPRIL [Concomitant]
     Route: 048
  25. PANTOZOL [Concomitant]
     Route: 048
  26. ALENDRONAT [Concomitant]
     Route: 048

REACTIONS (1)
  - EXTRADURAL ABSCESS [None]
